FAERS Safety Report 14176049 (Version 4)
Quarter: 2019Q4

REPORT INFORMATION
  Report Type: Spontaneous
  Country: IT (occurrence: IT)
  Receive Date: 20171109
  Receipt Date: 20191003
  Transmission Date: 20200122
  Serious: Yes (Life-Threatening, Hospitalization)
  Sender: FDA-Public Use
  Company Number: PHHY2017IT163424

PATIENT
  Age: 4 Year
  Sex: Female

DRUGS (1)
  1. DEFERASIROX. [Suspect]
     Active Substance: DEFERASIROX
     Indication: THALASSAEMIA BETA
     Dosage: 36 MG/KG, QD
     Route: 065

REACTIONS (10)
  - Metabolic acidosis [Recovered/Resolved]
  - Hyperammonaemia [Recovered/Resolved]
  - Altered state of consciousness [Recovering/Resolving]
  - Pyrexia [Recovering/Resolving]
  - Vomiting [Recovering/Resolving]
  - Hypophosphataemia [Recovered/Resolved]
  - Renal tubular acidosis [Unknown]
  - Stupor [Recovered/Resolved]
  - Glycosuria [Recovered/Resolved]
  - Proteinuria [Recovered/Resolved]
